FAERS Safety Report 5445672-8 (Version None)
Quarter: 2007Q3

REPORT INFORMATION
  Report Type: 
  Country: None (occurrence: None)
  Receive Date: 20070904
  Receipt Date: 20070823
  Transmission Date: 20080115
  Serious: Yes (Death)
  Sender: FDA-Public Use
  Company Number: 2007329647

PATIENT
  Age: 3 Year
  Sex: Female
  Weight: 6 kg

DRUGS (1)
  1. BENADRYL [Suspect]
     Dosage: 20 MG UNSPECIFIED (20 MG), INTRAVENOUS
     Route: 042

REACTIONS (2)
  - DYSKINESIA [None]
  - INCORRECT DOSE ADMINISTERED [None]
